FAERS Safety Report 9206969 (Version 1)
Quarter: 2013Q2

REPORT INFORMATION
  Report Type: Spontaneous
  Country: US (occurrence: US)
  Receive Date: 20130403
  Receipt Date: 20130403
  Transmission Date: 20140414
  Serious: No
  Sender: FDA-Public Use
  Company Number: US-BAYER-2013-041995

PATIENT
  Age: 80 Year
  Sex: Female
  Weight: 57 kg

DRUGS (4)
  1. ALEVE CAPLET [Suspect]
     Indication: ARTHRITIS
     Dosage: 2 DF, PRN
     Route: 048
     Dates: start: 2012
  2. OXYCONTIN [Concomitant]
  3. LYRICA [Concomitant]
  4. CENTRUM SILVER [Concomitant]

REACTIONS (2)
  - Incorrect drug administration duration [None]
  - Expired drug administered [None]
